FAERS Safety Report 10182924 (Version 4)
Quarter: 2015Q3

REPORT INFORMATION
  Report Type: Spontaneous
  Country: US (occurrence: US)
  Receive Date: 20140520
  Receipt Date: 20150909
  Transmission Date: 20151125
  Serious: Yes (Hospitalization)
  Sender: FDA-Public Use
  Company Number: US-PFIZER INC-2014135924

PATIENT
  Age: 66 Year
  Sex: Male

DRUGS (24)
  1. ALDACTONE [Concomitant]
     Active Substance: SPIRONOLACTONE
     Indication: BLOOD PRESSURE MEASUREMENT
     Dosage: 25 MG, UNK
     Dates: start: 201508
  2. XELJANZ [Suspect]
     Active Substance: TOFACITINIB CITRATE
     Indication: RHEUMATOID ARTHRITIS
     Dosage: UNK
     Dates: start: 201303
  3. COD LIVER OIL [Concomitant]
     Active Substance: COD LIVER OIL
     Indication: BLOOD CHOLESTEROL DECREASED
     Dosage: 1-530MG, UNK
     Dates: start: 201508
  4. LIPITOR [Concomitant]
     Active Substance: ATORVASTATIN CALCIUM
     Indication: BLOOD CHOLESTEROL INCREASED
     Dosage: 40 MG, UNK
     Dates: start: 201508
  5. GABAPENTIN. [Concomitant]
     Active Substance: GABAPENTIN
     Indication: NEURALGIA
     Dosage: 300 MG, 2X/DAY
     Dates: start: 201508
  6. PRILOSEC [Concomitant]
     Active Substance: OMEPRAZOLE MAGNESIUM
     Indication: GASTROOESOPHAGEAL REFLUX DISEASE
     Dosage: 40 MG, UNK
     Dates: start: 2009
  7. PACERONE [Concomitant]
     Active Substance: AMIODARONE HYDROCHLORIDE
     Indication: HEART RATE
     Dosage: 200 MG, UNK
     Dates: start: 201508
  8. ELIQUIS [Concomitant]
     Active Substance: APIXABAN
     Indication: ANTICOAGULANT THERAPY
     Dosage: 5 MG, 2X/DAY
     Dates: start: 201504
  9. ALLEGRA [Concomitant]
     Active Substance: FEXOFENADINE HYDROCHLORIDE
     Indication: HYPERSENSITIVITY
     Dosage: 180 MG, DAILY
  10. XELJANZ [Suspect]
     Active Substance: TOFACITINIB CITRATE
     Dosage: UNK, TWICE DAILY
     Dates: start: 201401
  11. ZETIA [Concomitant]
     Active Substance: EZETIMIBE
     Indication: BLOOD CHOLESTEROL
     Dosage: 10 MG, UNK
     Dates: start: 201504
  12. PLAVIX [Concomitant]
     Active Substance: CLOPIDOGREL BISULFATE
     Indication: VASODILATATION
     Dosage: 75 MG, UNK
     Dates: start: 201508
  13. LASIX [Concomitant]
     Active Substance: FUROSEMIDE
     Indication: DIURETIC THERAPY
     Dosage: 20 MG, UNK
     Dates: start: 201504
  14. CALCET [Concomitant]
     Indication: MUSCLE SPASMS
     Dosage: 1 OR 2 CALCET, AS NEEDED, BEDTIME)
  15. LANTUS [Concomitant]
     Active Substance: INSULIN GLARGINE
     Dosage: 16 IU, UNK  (LANTUS RANGE: 80-120)
     Dates: start: 2011
  16. CARVEDILOL. [Concomitant]
     Active Substance: CARVEDILOL
     Indication: BLOOD PRESSURE MEASUREMENT
     Dosage: 6.25 MG, 2X/DAY
     Dates: start: 201508
  17. CARVEDILOL. [Concomitant]
     Active Substance: CARVEDILOL
     Indication: CARDIAC FAILURE
  18. XELJANZ [Suspect]
     Active Substance: TOFACITINIB CITRATE
     Dosage: 5 MG, 2X/DAY
     Dates: start: 201305
  19. NOVOLOG [Concomitant]
     Active Substance: INSULIN ASPART
     Dosage: 14UNIT 3TIMES/DAY W/MEALS,IF DROPS BELOW 60 DROP 2UNIT IF ABOVE 140 GO UP 2UNIT
     Dates: start: 2011
  20. PREDNISONE. [Concomitant]
     Active Substance: PREDNISONE
     Indication: RHEUMATOID ARTHRITIS
     Dosage: 7 MG, UNK
     Dates: start: 2011
  21. ALDACTONE [Concomitant]
     Active Substance: SPIRONOLACTONE
     Indication: CARDIAC FAILURE
  22. NITRO [Concomitant]
     Active Substance: NITROGLYCERIN
     Indication: PAIN
     Dosage: TAKE 1 TABLET EVERY 5 MINUTES FOR UP TO 15 MINUTES, 1X/DAY
  23. VITAMIN A+D3 [Concomitant]
     Indication: BLOOD CHOLESTEROL INCREASED
     Dosage: UNK
     Dates: start: 201508
  24. PLAQUENIL [Concomitant]
     Active Substance: HYDROXYCHLOROQUINE SULFATE
     Indication: RHEUMATOID ARTHRITIS
     Dosage: 200 MG, UNK
     Dates: start: 2011

REACTIONS (9)
  - Oral herpes [Unknown]
  - Headache [Unknown]
  - Back pain [Unknown]
  - Intervertebral disc protrusion [Not Recovered/Not Resolved]
  - Malaise [Unknown]
  - Rhinorrhoea [Unknown]
  - Pneumonia [Recovered/Resolved]
  - Chills [Recovered/Resolved]
  - Chills [Unknown]

NARRATIVE: CASE EVENT DATE: 201405
